FAERS Safety Report 5527747-8 (Version None)
Quarter: 2007Q4

REPORT INFORMATION
  Report Type: 
  Country: None (occurrence: None)
  Receive Date: 20071128
  Receipt Date: 20071116
  Transmission Date: 20080405
  Serious: Yes (Other)
  Sender: FDA-Public Use
  Company Number: US-JNJFOC-20071107070

PATIENT
  Sex: Female
  Weight: 67.13 kg

DRUGS (8)
  1. FENTANYL TRANSDERMAL SYSTEM [Suspect]
     Indication: PAIN
     Route: 062
     Dates: start: 20070811, end: 20071114
  2. IMURAN [Concomitant]
     Indication: MUSCLE DISORDER
     Dosage: 2 IN THE MORNING, 1 IN THE EVENING
     Route: 048
  3. ARTHROTEC [Concomitant]
     Indication: ARTHRITIS
     Dosage: ONE IN THE MORNING, ONE IN THE EVENING
     Route: 048
  4. LUMIGAN [Concomitant]
     Indication: EYE DISORDER
     Dosage: 2 DROPS IN EACH EYE IN THE MORNING
     Route: 047
  5. NEXIUM [Concomitant]
     Indication: GASTRIC DISORDER
     Dosage: IN THE MORNING
     Route: 048
  6. VYTORIN [Concomitant]
     Indication: BLOOD CHOLESTEROL INCREASED
     Dosage: 10-20MG
     Route: 048
  7. UNSPECIFIED VITAMINS [Concomitant]
     Indication: VITAMIN SUPPLEMENTATION
     Route: 048
  8. FISH OIL [Concomitant]
     Indication: VITAMIN SUPPLEMENTATION
     Route: 048

REACTIONS (3)
  - BACK INJURY [None]
  - INAPPROPRIATE SCHEDULE OF DRUG ADMINISTRATION [None]
  - SPINAL FRACTURE [None]
